FAERS Safety Report 20641697 (Version 5)
Quarter: 2022Q3

REPORT INFORMATION
  Report Type: Report from Study
  Country: AU (occurrence: None)
  Receive Date: 20220328
  Receipt Date: 20220707
  Transmission Date: 20221027
  Serious: Yes (Hospitalization)
  Sender: FDA-Public Use
  Company Number: AU-ROCHE-3056356

PATIENT
  Age: 57 Year
  Sex: Male
  Weight: 85.5 kg

DRUGS (27)
  1. GLOFITAMAB [Suspect]
     Active Substance: GLOFITAMAB
     Indication: Diffuse large B-cell lymphoma
     Dosage: START DATE OF MOST RECENT DOSE 30 MG OF STUDY DRUG PRIOR TO AE 01-JUL-2021
     Route: 042
     Dates: start: 20201027
  2. RITUXIMAB [Suspect]
     Active Substance: RITUXIMAB
     Indication: Diffuse large B-cell lymphoma
     Dosage: MOST RECENT DOSE OF STUDY DRUG 750 MG/M2 PRIOR TO AE/SAE: 12-JAN-2021
     Route: 041
     Dates: start: 20200930
  3. CYCLOPHOSPHAMIDE [Suspect]
     Active Substance: CYCLOPHOSPHAMIDE
     Indication: Diffuse large B-cell lymphoma
     Dosage: MOST RECENT DOSE OF STUDY DRUG 1500 MG/M2 PRIOR TO AE/SAE: 12-JAN-2021
     Route: 042
     Dates: start: 20200930
  4. DOXORUBICIN [Suspect]
     Active Substance: DOXORUBICIN
     Indication: Diffuse large B-cell lymphoma
     Dosage: MOST RECENT DOSE OF STUDY DRUG 100 MG/M2 PRIOR TO AE/SAE: 12-JAN-2021
     Route: 042
     Dates: start: 20200930
  5. VINCRISTINE [Suspect]
     Active Substance: VINCRISTINE
     Indication: Diffuse large B-cell lymphoma
     Dosage: MOST RECENT DOSE OF STUDY DRUG PRIOR TO AE/SAE: 12-JAN-2021
     Route: 042
     Dates: start: 20200930
  6. PREDNISONE [Suspect]
     Active Substance: PREDNISONE
     Indication: Diffuse large B-cell lymphoma
     Dosage: MOST RECENT DOSE OF STUDY DRUG 100 MG PRIOR TO AE/SAE: 05-DEC-2020
     Route: 048
     Dates: start: 20200930
  7. PREDNISOLONE [Suspect]
     Active Substance: PREDNISOLONE
     Indication: Diffuse large B-cell lymphoma
     Dosage: MOST RECENT DOSE OF STUDY DRUG 100 MG PRIOR TO AE/SAE: 16-JAN-2021
     Route: 048
     Dates: start: 20201020
  8. ALLOPURINOL [Concomitant]
     Active Substance: ALLOPURINOL
     Indication: Prophylaxis
     Dates: start: 20200930
  9. TEMAZEPAM [Concomitant]
     Active Substance: TEMAZEPAM
     Indication: Insomnia
     Dates: start: 20201007
  10. ONDANSETRON [Concomitant]
     Active Substance: ONDANSETRON
     Indication: Nausea
     Dates: start: 20201007
  11. LORAZEPAM [Concomitant]
     Active Substance: LORAZEPAM
     Indication: Anxiety
     Dates: start: 20201028
  12. SOOLANTRA [Concomitant]
     Active Substance: IVERMECTIN
     Indication: Acne
     Dates: start: 20210108
  13. URAL [Concomitant]
     Indication: Urinary tract pain
     Dates: start: 20201220
  14. ENOXAPARIN SODIUM [Concomitant]
     Active Substance: ENOXAPARIN SODIUM
     Indication: Embolism
     Dates: start: 20210115
  15. VITAMINS [Concomitant]
     Active Substance: VITAMINS
     Dates: start: 2000
  16. PROBIOTICS NOS [Concomitant]
     Active Substance: PROBIOTICS NOS
     Dates: start: 2000
  17. VALACYCLOVIR HYDROCHLORIDE [Concomitant]
     Active Substance: VALACYCLOVIR HYDROCHLORIDE
     Dates: start: 20200930
  18. SULFAMETHOXAZOLE\TRIMETHOPRIM [Concomitant]
     Active Substance: SULFAMETHOXAZOLE\TRIMETHOPRIM
     Dates: start: 20200930
  19. VITAMIN D3 [Concomitant]
     Active Substance: CHOLECALCIFEROL
     Indication: Vitamin D deficiency
     Dates: start: 2000
  20. LIDOCAINE HYDROCHLORIDE [Concomitant]
     Active Substance: LIDOCAINE HYDROCHLORIDE
     Route: 048
     Dates: start: 20201007
  21. DOCUSATE;SENNOSIDES [Concomitant]
     Indication: Constipation prophylaxis
     Dates: start: 20201027
  22. ACETAMINOPHEN [Concomitant]
     Active Substance: ACETAMINOPHEN
     Dates: start: 20201117
  23. CELEBREX [Concomitant]
     Active Substance: CELECOXIB
     Indication: Back injury
     Dates: start: 20201126
  24. PANADEINE [Concomitant]
     Indication: Back injury
     Dates: start: 20201126
  25. METOCLOPRAMIDE [Concomitant]
     Active Substance: METOCLOPRAMIDE
     Indication: Nausea
     Dates: start: 20200930
  26. METOCLOPRAMIDE [Concomitant]
     Active Substance: METOCLOPRAMIDE
     Indication: Vomiting
  27. PFIZER-BIONTECH COVID-19 VACCINE [Concomitant]
     Active Substance: TOZINAMERAN
     Indication: COVID-19 prophylaxis
     Dates: start: 20220211, end: 20220211

REACTIONS (1)
  - COVID-19 pneumonia [Recovering/Resolving]

NARRATIVE: CASE EVENT DATE: 20220303
